FAERS Safety Report 5814122-1 (Version None)
Quarter: 2008Q3

REPORT INFORMATION
  Report Type: 
  Country: None (occurrence: None)
  Receive Date: 20080717
  Receipt Date: 20080707
  Transmission Date: 20090109
  Serious: Yes (Life-Threatening)
  Sender: FDA-Public Use
  Company Number: US-PFIZER INC-2008056716

PATIENT
  Sex: Male

DRUGS (2)
  1. NAVANE [Suspect]
  2. DRUG, UNSPECIFIED [Concomitant]

REACTIONS (4)
  - ABNORMAL FAECES [None]
  - MICTURITION DISORDER [None]
  - PENIS DISORDER [None]
  - TESTICULAR DISORDER [None]
